FAERS Safety Report 13467119 (Version 2)
Quarter: 2017Q2

REPORT INFORMATION
  Report Type: Report from Study
  Country: US (occurrence: US)
  Receive Date: 20170421
  Receipt Date: 20170503
  Transmission Date: 20170830
  Serious: Yes (Hospitalization)
  Sender: FDA-Public Use
  Company Number: US-TAIHO ONCOLOGY INC-EU-2016-02530

PATIENT
  Age: 65 Year
  Sex: Female
  Weight: 52.66 kg

DRUGS (17)
  1. FENTANYL. [Concomitant]
     Active Substance: FENTANYL
     Dates: start: 201606
  2. COMPAZINE [Concomitant]
     Active Substance: PROCHLORPERAZINE MALEATE
     Indication: VOMITING
  3. IBUPROFEN/HYDROCODONE BITARTRATE [Concomitant]
     Indication: PAIN
     Dates: start: 201606
  4. ZANTAC [Concomitant]
     Active Substance: RANITIDINE HYDROCHLORIDE
     Indication: DYSPEPSIA
     Dosage: NI
  5. LONSURF [Suspect]
     Active Substance: TIPIRACIL HYDROCHLORIDE\TRIFLURIDINE
     Indication: COLON CANCER STAGE IV
     Dosage: TOTAL OF 9 CYCLES
     Route: 048
     Dates: start: 20160621, end: 201702
  6. LORAZEPAM. [Concomitant]
     Active Substance: LORAZEPAM
     Dates: start: 201606
  7. LEXAPRO [Concomitant]
     Active Substance: ESCITALOPRAM OXALATE
     Dates: start: 201606
  8. AMBIEN [Concomitant]
     Active Substance: ZOLPIDEM TARTRATE
     Dosage: NI
  9. FENTANYL. [Concomitant]
     Active Substance: FENTANYL
     Indication: PAIN
  10. ZOFRAN [Concomitant]
     Active Substance: ONDANSETRON HYDROCHLORIDE
     Indication: VOMITING
     Dates: start: 201606
  11. COMPAZINE [Concomitant]
     Active Substance: PROCHLORPERAZINE MALEATE
     Indication: NAUSEA
     Dates: start: 201606
  12. GABAPENTIN. [Concomitant]
     Active Substance: GABAPENTIN
     Dates: start: 201606
  13. CLONAZEPAM. [Concomitant]
     Active Substance: CLONAZEPAM
     Indication: ANXIETY
     Dates: start: 201606
  14. CLONAZEPAM. [Concomitant]
     Active Substance: CLONAZEPAM
     Indication: SLEEP DISORDER
  15. LOVENOX [Concomitant]
     Active Substance: ENOXAPARIN SODIUM
     Indication: INTRACARDIAC MASS
     Dosage: NI
  16. LOVENOX [Concomitant]
     Active Substance: ENOXAPARIN SODIUM
     Indication: BLOOD DISORDER
  17. LOVASTATIN. [Concomitant]
     Active Substance: LOVASTATIN
     Dates: start: 201606

REACTIONS (10)
  - Stomatitis [Unknown]
  - Night sweats [Unknown]
  - Fatigue [Unknown]
  - Malaise [Unknown]
  - Pain [Unknown]
  - Disease progression [Unknown]
  - Ascites [Unknown]
  - Impaired quality of life [Unknown]
  - Rhinorrhoea [Unknown]
  - Nausea [Unknown]

NARRATIVE: CASE EVENT DATE: 2016
